FAERS Safety Report 9661601 (Version 2)
Quarter: 2013Q4

REPORT INFORMATION
  Report Type: Spontaneous
  Country: US (occurrence: US)
  Receive Date: 20131031
  Receipt Date: 20131031
  Transmission Date: 20140711
  Serious: No
  Sender: FDA-Public Use
  Company Number: US-PURDUE-USA-2010-0055167

PATIENT
  Age: 46 Year
  Sex: Female
  Weight: 85.26 kg

DRUGS (1)
  1. OXYCONTIN (NDA 22-272) [Suspect]
     Indication: PAIN
     Dosage: 10 MG, QID
     Route: 048
     Dates: start: 2010, end: 20100923

REACTIONS (8)
  - Reaction to drug excipients [Recovered/Resolved]
  - Wheezing [Recovered/Resolved]
  - Headache [Recovered/Resolved]
  - Abdominal pain upper [Recovered/Resolved]
  - Drug effect decreased [Recovered/Resolved]
  - Pruritus [Recovered/Resolved]
  - Nervousness [Recovered/Resolved]
  - Flushing [Recovered/Resolved]
